FAERS Safety Report 18281087 (Version 1)
Quarter: 2020Q3

REPORT INFORMATION
  Report Type: Spontaneous
  Country: CA (occurrence: CA)
  Receive Date: 20200918
  Receipt Date: 20200918
  Transmission Date: 20201103
  Serious: Yes (Other)
  Sender: FDA-Public Use
  Company Number: CA-AMGEN-CANSP2020150432

PATIENT
  Age: 39 Year
  Sex: Female

DRUGS (1)
  1. AIMOVIG [Suspect]
     Active Substance: ERENUMAB-AOOE
     Indication: MIGRAINE
     Dosage: 1 DF, QMO
     Route: 058

REACTIONS (3)
  - Dizziness [Recovered/Resolved]
  - Nephrolithiasis [Recovered/Resolved]
  - Pain in extremity [Recovered/Resolved]
